FAERS Safety Report 5627138-5 (Version None)
Quarter: 2008Q1

REPORT INFORMATION
  Report Type: 
  Country: None (occurrence: None)
  Receive Date: 20080212
  Receipt Date: 20080212
  Transmission Date: 20080703
  Serious: Yes (Hospitalization)
  Sender: FDA-Public Use
  Company Number: None

PATIENT
  Age: 58 Year
  Sex: Female
  Weight: 67 kg

DRUGS (13)
  1. PACLITAXEL [Suspect]
     Indication: BREAST CANCER
     Dates: start: 20080207, end: 20080207
  2. PROTONIX [Concomitant]
  3. OXYCODONE HCL [Concomitant]
  4. DILTIAZEM [Concomitant]
  5. SENNA [Concomitant]
  6. EFFEXOR [Concomitant]
  7. LORAZEPAM [Concomitant]
  8. CLONAZEPAM [Concomitant]
  9. KLOR-CON [Concomitant]
  10. LYRICA [Concomitant]
  11. PROMETHAZINE [Concomitant]
  12. OXYCODONE HCL [Concomitant]
  13. ZOMETA [Concomitant]

REACTIONS (1)
  - HOSPITALISATION [None]
